FAERS Safety Report 22299052 (Version 12)
Quarter: 2024Q3

REPORT INFORMATION
  Report Type: Spontaneous
  Country: US (occurrence: US)
  Receive Date: 20230509
  Receipt Date: 20240924
  Transmission Date: 20241017
  Serious: Yes (Disabling, Other)
  Sender: AMGEN
  Company Number: US-HORIZON THERAPEUTICS-HZN-2023-003359

PATIENT
  Age: 62 Year
  Sex: Male
  Weight: 104 kg

DRUGS (51)
  1. TEPEZZA [Suspect]
     Active Substance: TEPROTUMUMAB-TRBW
     Indication: Graves^ disease
     Dosage: 1070 MILLIGRAM, Q3WK  FIRST INFUSION
     Route: 042
     Dates: start: 20210526
  2. TEPEZZA [Suspect]
     Active Substance: TEPROTUMUMAB-TRBW
     Indication: Endocrine ophthalmopathy
     Dosage: 2160 MILLIGRAM, Q3WK SECOND INFUSION
     Route: 042
     Dates: start: 20210616
  3. TEPEZZA [Suspect]
     Active Substance: TEPROTUMUMAB-TRBW
     Dosage: 2140 MILLIGRAM, Q3WK  THIRD INFUSION
     Route: 042
     Dates: start: 20210707
  4. TEPEZZA [Suspect]
     Active Substance: TEPROTUMUMAB-TRBW
     Dosage: 2140 MILLIGRAM, Q3WK FOURTH INFUSION
     Route: 042
     Dates: start: 20210728
  5. TEPEZZA [Suspect]
     Active Substance: TEPROTUMUMAB-TRBW
     Dosage: 2080 MILLIGRAM, Q3WK  FIFTH INFUSION
     Route: 042
     Dates: start: 20210818
  6. TEPEZZA [Suspect]
     Active Substance: TEPROTUMUMAB-TRBW
     Dosage: 2080 MILLIGRAM, Q3WK SIXTH INFUSION
     Route: 042
     Dates: start: 20210908
  7. TEPEZZA [Suspect]
     Active Substance: TEPROTUMUMAB-TRBW
     Dosage: 2080 MILLIGRAM, Q3WK SEVENTH INFUSION
     Route: 042
     Dates: start: 20210929
  8. TEPEZZA [Suspect]
     Active Substance: TEPROTUMUMAB-TRBW
     Dosage: 2140 MILLIGRAM, Q3WK EIGHTH INFUSION
     Route: 042
     Dates: start: 20211020, end: 20211020
  9. PREDNISONE [Suspect]
     Active Substance: PREDNISONE
     Indication: Product used for unknown indication
     Dosage: 10 MILLIGRAM
     Route: 065
  10. SODIUM CHLORIDE [Concomitant]
     Active Substance: SODIUM CHLORIDE
     Dosage: UNK
     Route: 065
  11. SODIUM CHLORIDE [Concomitant]
     Active Substance: SODIUM CHLORIDE
     Dosage: UNK
     Route: 065
  12. SODIUM CHLORIDE [Concomitant]
     Active Substance: SODIUM CHLORIDE
     Dosage: 100 MILLILITER
     Route: 065
  13. SODIUM CHLORIDE [Concomitant]
     Active Substance: SODIUM CHLORIDE
     Dosage: 250 MILLILITER
     Route: 065
  14. SODIUM CHLORIDE [Concomitant]
     Active Substance: SODIUM CHLORIDE
     Dosage: 100 MILLILITER
     Route: 065
  15. SODIUM CHLORIDE [Concomitant]
     Active Substance: SODIUM CHLORIDE
     Dosage: 250 MILLILITER
     Route: 065
  16. WATER FOR INJECTION/INFUSION [Concomitant]
     Dosage: 50 MILLILITER
     Route: 065
  17. WATER FOR INJECTION/INFUSION [Concomitant]
     Dosage: 50 MILLILITER
     Route: 065
  18. WATER FOR INJECTION/INFUSION [Concomitant]
     Dosage: 50 MILLILITER
     Route: 065
  19. WATER FOR INJECTION/INFUSION [Concomitant]
     Dosage: 50 MILLILITER
     Route: 065
  20. OCUFLOX [Concomitant]
     Active Substance: OFLOXACIN
     Dosage: UNK
     Route: 065
     Dates: start: 20230629
  21. ERYTHROMYCIN [Concomitant]
     Active Substance: ERYTHROMYCIN
     Dosage: UNK
     Route: 065
  22. LIPITOR [Concomitant]
     Active Substance: ATORVASTATIN CALCIUM
     Dosage: 20 MILLIGRAM, NIGHTLY
     Route: 048
     Dates: start: 20201104, end: 20230609
  23. VIAGRA [Concomitant]
     Active Substance: SILDENAFIL CITRATE
     Dosage: 50 MILLIGRAM, QD, (100 MG TABLET, TAKE 1/2 TAB 30 MIN BEFORE SEX AS NEEDED)
     Route: 065
     Dates: start: 20201104, end: 20230609
  24. ANDROGEL [Concomitant]
     Active Substance: TESTOSTERONE
     Dosage: 20.25 MILLIGRAM, QD (20.25 MG/1.25 GRAM (1.62 %) PUMP TRANSDERMAL GEL APPLY 3 DEPRESSIONS TO SKIN EV
     Route: 065
     Dates: start: 20200518, end: 20230609
  25. LOVAZA [Concomitant]
     Active Substance: OMEGA-3-ACID ETHYL ESTERS
     Dosage: 2 GRAM, BID (1 GRAM CAPSULE TAKE 2 CAPSULES BY MOUTH 2 (TWO) TIMES DAILY)
     Route: 048
     Dates: start: 20200121, end: 20240225
  26. ASPIRIN [Concomitant]
     Active Substance: ASPIRIN
     Dosage: UNK, LOW-DOSE
     Route: 048
     Dates: end: 20230609
  27. LOTRISONE [Concomitant]
     Active Substance: BETAMETHASONE DIPROPIONATE\CLOTRIMAZOLE
     Dosage: UNK, BID (1-0.05 % CREAM APPLY 1 APPLICATION)
     Route: 061
  28. CRESTOR [Concomitant]
     Active Substance: ROSUVASTATIN CALCIUM
     Dosage: 10 MILLIGRAM, NIGHTLY
     Route: 048
     Dates: start: 20230719, end: 20230926
  29. CRESTOR [Concomitant]
     Active Substance: ROSUVASTATIN CALCIUM
     Dosage: 10 MILLIGRAM, NIGHTLY
     Route: 048
     Dates: end: 20231106
  30. PRAVACHOL [Concomitant]
     Active Substance: PRAVASTATIN SODIUM
     Dosage: 80 MILLIGRAM (TAKE 1 TABLET)
     Route: 048
     Dates: start: 20230926
  31. TESTOSTERONE [Concomitant]
     Active Substance: TESTOSTERONE
     Dosage: UNK, QD,  30 MG/ACTUATION (1.5 ML) SLPM USE 2 PUMPS ON SKIN DAILY AS DIRECTED
     Route: 061
     Dates: end: 20230817
  32. PRILOSEC [Concomitant]
     Active Substance: OMEPRAZOLE MAGNESIUM
     Dosage: 20 MILLIGRAM, QD
     Route: 048
     Dates: start: 20230926, end: 20240205
  33. OXYCONTIN [Concomitant]
     Active Substance: OXYCODONE HYDROCHLORIDE
     Dosage: 10 MILLIGRAM
     Route: 065
  34. SHINGRIX [Concomitant]
     Active Substance: RECOMBINANT VARICELLA ZOSTER VIRUS (VZV) GLYCOPROTEIN E
     Dosage: UNK, VIAL KIT
     Route: 065
  35. ONDANSETRON HYDROCHLORIDE [Concomitant]
     Active Substance: ONDANSETRON HYDROCHLORIDE
     Dosage: 4 MILLIGRAM
     Route: 065
  36. DOCUSATE SODIUM [Concomitant]
     Active Substance: DOCUSATE SODIUM
     Dosage: 100 MILLIGRAM SOFT GEL
     Route: 065
  37. AMOXICILLIN\CLAVULANATE POTASSIUM [Concomitant]
     Active Substance: AMOXICILLIN\CLAVULANATE POTASSIUM
     Dosage: UNK, 875-125 MG
     Route: 065
  38. TOBRAMYCIN AND DEXAMETHASONE [Concomitant]
     Active Substance: DEXAMETHASONE\TOBRAMYCIN
     Dosage: UNK, OPHTH SUSP
     Route: 065
  39. METHYLPREDNISOLONE [Concomitant]
     Active Substance: METHYLPREDNISOLONE
     Dosage: 4 MILLIGRAM, DOSE PAK
     Route: 065
  40. OXYCODONE HYDROCHLORIDE [Concomitant]
     Active Substance: OXYCODONE HYDROCHLORIDE
     Dosage: 5 MILLIGRAM
     Route: 065
  41. DEXAMETHASONE\NEOMYCIN\POLYMYXIN B [Concomitant]
     Active Substance: DEXAMETHASONE\NEOMYCIN\POLYMYXIN B
     Dosage: UNK
     Route: 065
  42. BOOSTRIX [Concomitant]
     Active Substance: TETANUS TOXOID, REDUCED DIPHTHERIA TOXOID AND ACELLULAR PERTUSSIS VACCINE, ADSORBED ANTIGENS
     Dosage: UNK, TDAP VACCINE SYRINGE
     Route: 065
  43. FLUCELVAX NOS [Concomitant]
     Active Substance: INFLUENZA A VIRUS A/BRISBANE/10/2010 (H1N1) ANTIGEN (MDCK CELL DERIVED, PROPIOLACTONE INACTIVATED)\I
     Dosage: UNK, QUAD 2023-2024 SYR
     Route: 065
  44. COVID-19 vaccine [Concomitant]
     Dosage: UNK, PFIZER COVID 19 VACCINE
     Route: 065
  45. MELOXICAM [Concomitant]
     Active Substance: MELOXICAM
     Dosage: 10 MILLIGRAM
     Route: 065
  46. AXIRON [Concomitant]
     Active Substance: TESTOSTERONE
     Dosage: 30 MILLIGRAM, QD  (2 PUMPS ON SKIN)
     Route: 061
  47. MAXITROL [Concomitant]
     Active Substance: DEXAMETHASONE\NEOMYCIN SULFATE\POLYMYXIN B SULFATE
     Dosage: UNK, TID
     Route: 061
  48. FLONASE [Concomitant]
     Active Substance: FLUTICASONE PROPIONATE
     Dosage: UNK UNK, QD  (2 SPRAYS INTRANASAL)
     Route: 045
  49. IBUPROFEN [Concomitant]
     Active Substance: IBUPROFEN
     Dosage: 800 MILLIGRAM, Q8H
     Route: 048
  50. FISH OIL [Concomitant]
     Active Substance: FISH OIL
     Dosage: UNK
     Route: 065
  51. OMEPRAZOLE [Concomitant]
     Active Substance: OMEPRAZOLE
     Dosage: UNK
     Route: 065

REACTIONS (35)
  - Endocrine ophthalmopathy [Not Recovered/Not Resolved]
  - Deafness permanent [Not Recovered/Not Resolved]
  - Erectile dysfunction [Not Recovered/Not Resolved]
  - Autoimmune thyroiditis [Unknown]
  - Cataract nuclear [Unknown]
  - Ankle fracture [Unknown]
  - Dermatosis [Not Recovered/Not Resolved]
  - Anxiety [Not Recovered/Not Resolved]
  - Emotional distress [Not Recovered/Not Resolved]
  - Dyspepsia [Not Recovered/Not Resolved]
  - Thyroid stimulating immunoglobulin increased [Not Recovered/Not Resolved]
  - Arthralgia [Not Recovered/Not Resolved]
  - Hypogonadism male [Not Recovered/Not Resolved]
  - Obesity [Not Recovered/Not Resolved]
  - Eye operation [Unknown]
  - Red blood cell sedimentation rate increased [Unknown]
  - Blood cholesterol increased [Unknown]
  - Very low density lipoprotein increased [Unknown]
  - Total cholesterol/HDL ratio decreased [Unknown]
  - Blood triglycerides increased [Unknown]
  - Alanine aminotransferase increased [Unknown]
  - Vitamin D decreased [Unknown]
  - Blood albumin decreased [Unknown]
  - Erythema of eyelid [Unknown]
  - Conjunctival oedema [Unknown]
  - Eye inflammation [Unknown]
  - Strabismus [Recovering/Resolving]
  - Conjunctival haemorrhage [Recovering/Resolving]
  - Chronic sinusitis [Unknown]
  - Nasal turbinate hypertrophy [Unknown]
  - Tonsillitis [Unknown]
  - Pinguecula [Unknown]
  - Glycosylated haemoglobin increased [Unknown]
  - Fatigue [Not Recovered/Not Resolved]
  - Blood glucose increased [Unknown]

NARRATIVE: CASE EVENT DATE: 20230110
